FAERS Safety Report 12937391 (Version 1)
Quarter: 2016Q4

REPORT INFORMATION
  Report Type: Spontaneous
  Country: GB (occurrence: GB)
  Receive Date: 20161114
  Receipt Date: 20161114
  Transmission Date: 20170207
  Serious: Yes (Life-Threatening, Other)
  Sender: FDA-Public Use
  Company Number: GB-SA-2016SA205112

PATIENT
  Age: 18 Year
  Sex: Male
  Weight: 90 kg

DRUGS (8)
  1. SERTRALINE [Concomitant]
     Active Substance: SERTRALINE HYDROCHLORIDE
     Indication: INSOMNIA
     Dosage: IN THE MORNING.
     Route: 065
     Dates: start: 2009
  2. LAMOTRIGINE. [Concomitant]
     Active Substance: LAMOTRIGINE
     Indication: IMPULSIVE BEHAVIOUR
     Dosage: AT NIGHT
     Route: 065
     Dates: start: 201607
  3. DHC CONTINUS [Concomitant]
     Active Substance: DIHYDROCODEINE BITARTRATE
     Indication: INTENTIONAL OVERDOSE
     Dosage: DOSAGE TEXT:- 60
     Route: 065
  4. NUROFEN PLUS [Concomitant]
     Active Substance: CODEINE PHOSPHATE\IBUPROFEN
     Indication: INTENTIONAL OVERDOSE
     Dosage: FORM:- DENTAL GEL
     Route: 065
  5. TRAMADOL. [Concomitant]
     Active Substance: TRAMADOL
     Indication: INTENTIONAL OVERDOSE
     Dosage: FORM:- GRANULES FOR ORAL SUSPENSION.
     Route: 065
  6. PROMETHAZINE [Concomitant]
     Active Substance: PROMETHAZINE\PROMETHAZINE HYDROCHLORIDE
     Indication: INTENTIONAL OVERDOSE
     Dosage: 28
     Route: 065
  7. ZOLPIDEM TARTRATE. [Suspect]
     Active Substance: ZOLPIDEM TARTRATE
     Indication: INSOMNIA
     Dosage: AT NIGHT. 30
     Route: 048
     Dates: start: 20160701, end: 20161016
  8. PREGABALIN. [Concomitant]
     Active Substance: PREGABALIN
     Indication: ANXIETY
     Route: 065
     Dates: start: 201607

REACTIONS (4)
  - Sexually inappropriate behaviour [Recovering/Resolving]
  - Suicide attempt [Recovering/Resolving]
  - Suicidal ideation [Recovered/Resolved]
  - Sleep-related eating disorder [Recovering/Resolving]
